FAERS Safety Report 6803635-1 (Version None)
Quarter: 2010Q2

REPORT INFORMATION
  Report Type: 
  Country: None (occurrence: None)
  Receive Date: 20100628
  Receipt Date: 20100617
  Transmission Date: 20101027
  Serious: Yes (Other)
  Sender: FDA-Public Use
  Company Number: US-SANOFI-AVENTIS-2010SA036162

PATIENT
  Sex: Male

DRUGS (5)
  1. LANTUS [Suspect]
     Dosage: DOSE:15 UNIT(S)
     Route: 058
     Dates: start: 20000101
  2. AVANDIA [Suspect]
     Dates: start: 20080101
  3. BYETTA [Concomitant]
  4. GLUCOTROL [Concomitant]
  5. ACARBOSE [Concomitant]

REACTIONS (10)
  - ARTERIOSCLEROSIS [None]
  - BLOOD GLUCOSE INCREASED [None]
  - CARDIAC DISORDER [None]
  - GLYCOSYLATED HAEMOGLOBIN INCREASED [None]
  - HIP ARTHROPLASTY [None]
  - HYPERHIDROSIS [None]
  - HYPOGLYCAEMIA [None]
  - NEUROPATHY PERIPHERAL [None]
  - SURGERY [None]
  - WEIGHT INCREASED [None]
